FAERS Safety Report 19007890 (Version 1)
Quarter: 2021Q1

REPORT INFORMATION
  Report Type: Other
  Country: IN (occurrence: IN)
  Receive Date: 20210315
  Receipt Date: 20210315
  Transmission Date: 20210420
  Serious: Yes (Other)
  Sender: FDA-Public Use
  Company Number: IN-SAPTALIS PHARMACEUTICALS,LLC-000052

PATIENT
  Age: 25 Year
  Sex: Female

DRUGS (1)
  1. TRIAMCINOLONE ACETONIDE. [Suspect]
     Active Substance: TRIAMCINOLONE ACETONIDE
     Indication: CYSTOID MACULAR OEDEMA
     Dosage: 20 MG/0.5 ML
     Route: 031

REACTIONS (2)
  - Chorioretinopathy [Recovering/Resolving]
  - Glaucoma [Unknown]
